FAERS Safety Report 12469606 (Version 2)
Quarter: 2017Q2

REPORT INFORMATION
  Report Type: Spontaneous
  Country: CH (occurrence: CH)
  Receive Date: 20160615
  Receipt Date: 20170427
  Transmission Date: 20170830
  Serious: Yes (Life-Threatening, Hospitalization)
  Sender: FDA-Public Use
  Company Number: CH-TEVA-667408ISR

PATIENT
  Age: 77 Year
  Sex: Female

DRUGS (3)
  1. DOCETAXEL. [Interacting]
     Active Substance: DOCETAXEL
     Indication: INVASIVE DUCTAL BREAST CARCINOMA
     Dosage: 1 CYCLE
  2. PACLITAXEL. [Suspect]
     Active Substance: PACLITAXEL
     Indication: INVASIVE DUCTAL BREAST CARCINOMA
     Dosage: FIRST FOUR CYCLES
  3. AMIODARONE [Interacting]
     Active Substance: AMIODARONE
     Indication: PALPITATIONS

REACTIONS (7)
  - Dysphagia [Recovered/Resolved]
  - Skin exfoliation [Recovered/Resolved]
  - Drug interaction [Recovered/Resolved]
  - Dehydration [Recovered/Resolved]
  - Abdominal discomfort [Recovered/Resolved]
  - Mucosal inflammation [Recovered/Resolved]
  - Blister [Recovered/Resolved]
